FAERS Safety Report 4492721-X (Version None)
Quarter: 2004Q4

REPORT INFORMATION
  Report Type: 
  Country: None (occurrence: None)
  Receive Date: 20041104
  Receipt Date: 20041029
  Transmission Date: 20050328
  Serious: Yes (Hospitalization)
  Sender: FDA-Public Use
  Company Number: 200420812GDDC

PATIENT
  Age: 51 Year
  Sex: Male

DRUGS (1)
  1. FLUDEX [Suspect]
     Indication: HYPERTENSION
     Route: 048
     Dates: start: 20040910, end: 20040901

REACTIONS (6)
  - ARRHYTHMIA [None]
  - ASTHENIA [None]
  - CARDIAC DISORDER [None]
  - GASTROENTERITIS [None]
  - HYPOKALAEMIA [None]
  - MUSCLE CRAMP [None]
